FAERS Safety Report 7539829-X (Version None)
Quarter: 2011Q2

REPORT INFORMATION
  Report Type: 
  Country: None (occurrence: None)
  Receive Date: 20110610
  Receipt Date: 20110517
  Transmission Date: 20111010
  Serious: Yes (Hospitalization)
  Sender: FDA-Public Use
  Company Number: US-BAYER-201031324NA

PATIENT
  Age: 28 Year
  Sex: Female
  Weight: 74.603 kg

DRUGS (5)
  1. YAZ [Suspect]
     Indication: CONTRACEPTION
     Dosage: QD
     Dates: start: 20050101, end: 20090101
  2. YAZ [Suspect]
     Indication: ADNEXA UTERI PAIN
  3. IBUPROFEN [Concomitant]
     Indication: MUSCLE SPASMS
     Dosage: 800 MG, TID FOR 3 DAYS
     Dates: start: 20080701
  4. YASMIN [Suspect]
     Indication: ADNEXA UTERI PAIN
  5. YASMIN [Suspect]
     Indication: CONTRACEPTION
     Dosage: UNK
     Dates: start: 20050101, end: 20090101

REACTIONS (4)
  - ABDOMINAL PAIN UPPER [None]
  - CHOLECYSTITIS [None]
  - INJURY [None]
  - CHOLELITHIASIS [None]
